FAERS Safety Report 7774944-7 (Version None)
Quarter: 2011Q3

REPORT INFORMATION
  Report Type: 
  Country: None (occurrence: None)
  Receive Date: 20110923
  Receipt Date: 20110915
  Transmission Date: 20111222
  Serious: Yes (Other)
  Sender: FDA-Public Use
  Company Number: PHHY2011JP82411

PATIENT
  Age: 40 Year
  Sex: Male

DRUGS (4)
  1. ALBUMIN (HUMAN) [Concomitant]
     Dosage: 7 SESSIONS
  2. HEPARIN [Suspect]
     Indication: MICROSCOPIC POLYANGIITIS
     Dosage: 03 SESSIONS WEEKLY
  3. PLASMA [Concomitant]
     Dosage: 3-LITER
  4. CYCLOPHOSPHAMIDE [Concomitant]
     Dosage: 900 MG/DAY
     Route: 042

REACTIONS (4)
  - HEPARIN-INDUCED THROMBOCYTOPENIA [None]
  - PLATELET COUNT DECREASED [None]
  - HEPARIN-INDUCED THROMBOCYTOPENIA TEST [None]
  - THROMBOSIS IN DEVICE [None]
